FAERS Safety Report 9613042 (Version 2)
Quarter: 2013Q4

REPORT INFORMATION
  Report Type: Spontaneous
  Country: US (occurrence: US)
  Receive Date: 20131010
  Receipt Date: 20131202
  Transmission Date: 20140711
  Serious: Yes (Hospitalization)
  Sender: FDA-Public Use
  Company Number: US-ENDO PHARMACEUTICALS INC.-OPCR20130370

PATIENT
  Age: 70 Year
  Sex: Male

DRUGS (5)
  1. OPANA ER 40MG [Suspect]
     Indication: BACK PAIN
     Route: 048
  2. OPANA ER 40MG [Suspect]
     Indication: PAIN IN EXTREMITY
  3. OPANA ER [Concomitant]
     Indication: BACK PAIN
     Dosage: UNKNOWN
     Route: 048
  4. OPANA ER [Concomitant]
     Indication: PAIN IN EXTREMITY
  5. VICODIN [Concomitant]
     Indication: PAIN
     Dosage: UNKNOWN
     Route: 048

REACTIONS (6)
  - Diverticulitis [Unknown]
  - Dysgeusia [Unknown]
  - Weight decreased [Unknown]
  - Abdominal pain upper [Recovered/Resolved]
  - Nausea [Not Recovered/Not Resolved]
  - Vomiting [Unknown]
